FAERS Safety Report 18737671 (Version 4)
Quarter: 2022Q4

REPORT INFORMATION
  Report Type: Spontaneous
  Country: US (occurrence: US)
  Receive Date: 20210113
  Receipt Date: 20221013
  Transmission Date: 20230113
  Serious: Yes (Other)
  Sender: FDA-Public Use
  Company Number: US-VIFOR (INTERNATIONAL) INC.-VIT-2020-12324

PATIENT
  Sex: Female
  Weight: 68.2 kg

DRUGS (11)
  1. VELTASSA [Suspect]
     Active Substance: PATIROMER
     Indication: Hyperkalaemia
     Route: 048
  2. VELTASSA [Suspect]
     Active Substance: PATIROMER
     Route: 048
     Dates: start: 20201216
  3. VELTASSA [Suspect]
     Active Substance: PATIROMER
     Dosage: AS NEEDED
     Route: 048
  4. LEVOTHYROXINE [Concomitant]
     Active Substance: LEVOTHYROXINE
     Dosage: 75
  5. IRBESARTAN [Concomitant]
     Active Substance: IRBESARTAN
     Dosage: 30
  6. ENALAPRIL [Concomitant]
     Active Substance: ENALAPRIL
     Dosage: 20
  7. CLONIDINE [Concomitant]
     Active Substance: CLONIDINE
     Dosage: 0.1
  8. ATORVASTATIN [Concomitant]
     Active Substance: ATORVASTATIN
     Dosage: 40
  9. ASPIRIN [Concomitant]
     Active Substance: ASPIRIN
     Dosage: 81
  10. AMLODIPINE [Concomitant]
     Active Substance: AMLODIPINE BESYLATE
     Dosage: 10
  11. BRIMONIDINE [Concomitant]
     Active Substance: BRIMONIDINE TARTRATE

REACTIONS (5)
  - Renal impairment [Unknown]
  - Nasopharyngitis [Not Recovered/Not Resolved]
  - Hypersomnia [Not Recovered/Not Resolved]
  - Ill-defined disorder [Unknown]
  - Off label use [Unknown]

NARRATIVE: CASE EVENT DATE: 20200101
